FAERS Safety Report 6142896-1 (Version None)
Quarter: 2009Q2

REPORT INFORMATION
  Report Type: 
  Country: None (occurrence: None)
  Receive Date: 20090403
  Receipt Date: 20090402
  Transmission Date: 20091009
  Serious: Yes (Life-Threatening, Other)
  Sender: FDA-Public Use
  Company Number: RU-JNJFOC-20090400596

PATIENT
  Sex: Female

DRUGS (1)
  1. TAVANIC [Suspect]
     Indication: SINUSITIS
     Route: 048

REACTIONS (2)
  - MULTIPLE FRACTURES [None]
  - SYNCOPE [None]
